FAERS Safety Report 17687197 (Version 1)
Quarter: 2020Q2

REPORT INFORMATION
  Report Type: Spontaneous
  Country: CN (occurrence: CN)
  Receive Date: 20200421
  Receipt Date: 20200421
  Transmission Date: 20200714
  Serious: Yes (Hospitalization)
  Sender: FDA-Public Use
  Company Number: CN-ROCHE-2581528

PATIENT
  Age: 31 Year
  Sex: Female
  Weight: 42 kg

DRUGS (3)
  1. AVASTIN [Suspect]
     Active Substance: BEVACIZUMAB
     Indication: NEUROFIBROSARCOMA
     Route: 042
     Dates: start: 20200320, end: 20200320
  2. DOCETAXEL. [Suspect]
     Active Substance: DOCETAXEL
     Indication: NEUROFIBROSARCOMA
     Route: 041
     Dates: start: 20200318, end: 20200318
  3. GEMCITABINE HYDROCHLORIDE. [Suspect]
     Active Substance: GEMCITABINE HYDROCHLORIDE
     Indication: NEUROFIBROSARCOMA
     Route: 041
     Dates: start: 20200322, end: 20200322

REACTIONS (3)
  - Intentional product use issue [Unknown]
  - Off label use [Unknown]
  - Bone marrow failure [Recovering/Resolving]

NARRATIVE: CASE EVENT DATE: 20200323
